FAERS Safety Report 5065710-4 (Version None)
Quarter: 2006Q3

REPORT INFORMATION
  Report Type: 
  Country: None (occurrence: None)
  Receive Date: 20060725
  Receipt Date: 20060712
  Transmission Date: 20061208
  Serious: Yes (Other)
  Sender: FDA-Public Use
  Company Number: S06-FRA-02890-01

PATIENT
  Age: 60 Year
  Sex: Female

DRUGS (3)
  1. SEROPLEX (ESCITALOPRAM) [Suspect]
     Indication: DEPRESSION
  2. BETA BLOCKING AGENTS [Concomitant]
  3. BENZODIAZEPINE DERIVATIVES [Concomitant]

REACTIONS (1)
  - PARKINSONISM [None]
